FAERS Safety Report 21370975 (Version 1)
Quarter: 2022Q3

REPORT INFORMATION
  Report Type: Spontaneous
  Country: US (occurrence: US)
  Receive Date: 20220923
  Receipt Date: 20220923
  Transmission Date: 20221027
  Serious: No
  Sender: FDA-Public Use
  Company Number: US-BRISTOL-MYERS SQUIBB COMPANY-2022-108730

PATIENT
  Age: 79 Year
  Sex: Female

DRUGS (2)
  1. ELIQUIS [Suspect]
     Active Substance: APIXABAN
     Indication: Myocardial infarction
     Route: 048
     Dates: start: 202209
  2. Kelfex [Concomitant]
     Indication: Product used for unknown indication
     Route: 065

REACTIONS (2)
  - Blood urine present [Recovered/Resolved]
  - Intentional product use issue [Unknown]

NARRATIVE: CASE EVENT DATE: 20220901
